FAERS Safety Report 7234477-3 (Version None)
Quarter: 2011Q1

REPORT INFORMATION
  Report Type: 
  Country: None (occurrence: None)
  Receive Date: 20110119
  Receipt Date: 20110107
  Transmission Date: 20110831
  Serious: Yes (Hospitalization)
  Sender: FDA-Public Use
  Company Number: US-ELI_LILLY_AND_COMPANY-US201101001804

PATIENT
  Sex: Female
  Weight: 82.993 kg

DRUGS (10)
  1. GLIMEPIRIDE [Concomitant]
     Indication: TYPE 2 DIABETES MELLITUS
     Dosage: 4 MG, 2/D
     Dates: start: 20100101
  2. LISINOPRIL [Concomitant]
     Dosage: 20 MG, DAILY (1/D)
  3. BYETTA [Suspect]
     Dosage: 10 UG, 2/D
     Dates: start: 20090101, end: 20100101
  4. PROTONIX [Concomitant]
     Dosage: 40 MG, DAILY (1/D)
  5. ROPINIROLE [Concomitant]
     Dosage: 0.25 MG, UNK
  6. URSODIOL [Concomitant]
     Indication: LIVER DISORDER
     Dosage: 300 MG, 3/D
  7. ZOLPIDEM [Concomitant]
     Indication: INSOMNIA
     Dosage: 10 MG, EACH EVENING
  8. REQUIP [Concomitant]
     Indication: RESTLESS LEGS SYNDROME
     Dosage: 0.25 MG, EACH EVENING
  9. BYETTA [Suspect]
     Indication: TYPE 2 DIABETES MELLITUS
     Dosage: 5 UG, 2/D
     Route: 058
     Dates: start: 20090101, end: 20090101
  10. METFORMIN HCL [Concomitant]

REACTIONS (18)
  - SEPSIS [None]
  - DYSARTHRIA [None]
  - VIRAL INFECTION [None]
  - JOINT INJURY [None]
  - MUSCULAR WEAKNESS [None]
  - FATIGUE [None]
  - DIARRHOEA [None]
  - MULTI-ORGAN DISORDER [None]
  - MOBILITY DECREASED [None]
  - ABDOMINAL DISCOMFORT [None]
  - VOMITING [None]
  - MEMORY IMPAIRMENT [None]
  - CATARACT [None]
  - ROTATOR CUFF REPAIR [None]
  - RENAL FAILURE [None]
  - FALL [None]
  - LETHARGY [None]
  - DECREASED APPETITE [None]
